FAERS Safety Report 8513396-6 (Version None)
Quarter: 2012Q3

REPORT INFORMATION
  Report Type: 
  Country: None (occurrence: None)
  Receive Date: 20120717
  Receipt Date: 20120709
  Transmission Date: 20120928
  Serious: Yes (Hospitalization)
  Sender: FDA-Public Use
  Company Number: US-BRISTOL-MYERS SQUIBB COMPANY-16753782

PATIENT
  Age: 24 Year
  Sex: Male
  Weight: 107 kg

DRUGS (2)
  1. ABILIFY [Suspect]
     Indication: SCHIZOPHRENIA
     Dates: end: 20120301
  2. GEODON [Suspect]
     Indication: SCHIZOPHRENIA

REACTIONS (2)
  - HALLUCINATION, AUDITORY [None]
  - FEELING ABNORMAL [None]
